FAERS Safety Report 18997898 (Version 1)
Quarter: 2021Q1

REPORT INFORMATION
  Report Type: Spontaneous
  Country: GB (occurrence: GB)
  Receive Date: 20210303
  Receipt Date: 20210303
  Transmission Date: 20210420
  Serious: Yes (Hospitalization, Other)
  Sender: FDA-Public Use
  Company Number: GB-DEXPHARM-20210260

PATIENT
  Age: 61 Year
  Sex: Female
  Weight: 54 kg

DRUGS (7)
  1. AMISULPRIDE [Concomitant]
     Active Substance: AMISULPRIDE
  2. CLONAZEPAM. [Concomitant]
     Active Substance: CLONAZEPAM
     Dates: end: 20201007
  3. FOLIC ACID. [Concomitant]
     Active Substance: FOLIC ACID
  4. LORAZEPAM. [Concomitant]
     Active Substance: LORAZEPAM
  5. SERTRALINE [Concomitant]
     Active Substance: SERTRALINE HYDROCHLORIDE
     Dates: end: 20201204
  6. PHENYTOIN SODIUM. [Suspect]
     Active Substance: PHENYTOIN SODIUM
     Indication: EPILEPSY
  7. VENLAFAXINE [Suspect]
     Active Substance: VENLAFAXINE HYDROCHLORIDE
     Indication: MAJOR DEPRESSION
     Dates: start: 20201204

REACTIONS (2)
  - Toxicity to various agents [Recovered/Resolved]
  - Drug interaction [Recovered/Resolved]

NARRATIVE: CASE EVENT DATE: 20201204
